FAERS Safety Report 13490807 (Version 2)
Quarter: 2017Q2

REPORT INFORMATION
  Report Type: Spontaneous
  Country: FR (occurrence: FR)
  Receive Date: 20170427
  Receipt Date: 20170427
  Transmission Date: 20170830
  Serious: Yes (Hospitalization, Disabling, Other)
  Sender: FDA-Public Use
  Company Number: FR-ROCHE-1923641

PATIENT
  Age: 13 Year
  Sex: Male

DRUGS (2)
  1. NUTROPIN AQ [Suspect]
     Active Substance: SOMATROPIN
     Indication: FOETAL GROWTH RESTRICTION
     Dosage: 10 MG/2 ML
     Route: 058
     Dates: start: 200910, end: 201403
  2. NUTROPIN AQ [Suspect]
     Active Substance: SOMATROPIN
     Indication: OFF LABEL USE

REACTIONS (3)
  - Off label use [Unknown]
  - Postoperative wound infection [Unknown]
  - Scoliosis [Not Recovered/Not Resolved]

NARRATIVE: CASE EVENT DATE: 201403
